FAERS Safety Report 10204711 (Version 2)
Quarter: 2014Q3

REPORT INFORMATION
  Report Type: Report from Study
  Country: US (occurrence: US)
  Receive Date: 20140529
  Receipt Date: 20140711
  Transmission Date: 20150326
  Serious: No
  Sender: FDA-Public Use
  Company Number: US-PFIZER INC-2014145194

PATIENT

DRUGS (1)
  1. BOSULIF [Suspect]
     Active Substance: BOSUTINIB MONOHYDRATE
     Indication: CHRONIC MYELOID LEUKAEMIA
     Dosage: UNK

REACTIONS (1)
  - Drug intolerance [Unknown]
